FAERS Safety Report 9138997 (Version 1)
Quarter: 2013Q1

REPORT INFORMATION
  Report Type: Spontaneous
  Country: NO (occurrence: NO)
  Receive Date: 20130305
  Receipt Date: 20130305
  Transmission Date: 20140127
  Serious: Yes (Hospitalization)
  Sender: FDA-Public Use
  Company Number: NO-ELI_LILLY_AND_COMPANY-NO201302008694

PATIENT
  Sex: Male

DRUGS (5)
  1. OLANZAPINE [Suspect]
  2. CIPRALEX [Concomitant]
  3. KAPSOVIT [Concomitant]
  4. ZOPICLONE [Concomitant]
  5. CISORDINOL                              /DEN/ [Concomitant]

REACTIONS (1)
  - Erectile dysfunction [Unknown]
